FAERS Safety Report 15576074 (Version 1)
Quarter: 2018Q4

REPORT INFORMATION
  Report Type: Spontaneous
  Country: HR (occurrence: HR)
  Receive Date: 20181101
  Receipt Date: 20181101
  Transmission Date: 20190205
  Serious: Yes (Other)
  Sender: FDA-Public Use
  Company Number: HR-ALEMBIC PHARMACUETICALS LIMITED-2018SCAL000801

PATIENT

DRUGS (2)
  1. FLUPHENAZINE [Suspect]
     Active Substance: FLUPHENAZINE
     Indication: SCHIZOPHRENIA
     Dosage: UNK
  2. QUETIAPINE FUMARATE. [Suspect]
     Active Substance: QUETIAPINE FUMARATE
     Indication: SCHIZOPHRENIA
     Dosage: UNK

REACTIONS (1)
  - Drug-induced liver injury [Unknown]
